FAERS Safety Report 12498305 (Version 1)
Quarter: 2016Q2

REPORT INFORMATION
  Report Type: Spontaneous
  Country: US (occurrence: US)
  Receive Date: 20160627
  Receipt Date: 20160627
  Transmission Date: 20160815
  Serious: No
  Sender: FDA-Public Use
  Company Number: US-ALEXION-A201604620

PATIENT
  Age: 2 Year
  Sex: Female
  Weight: 13 kg

DRUGS (1)
  1. SOLIRIS [Suspect]
     Active Substance: ECULIZUMAB
     Indication: HAEMOLYTIC URAEMIC SYNDROME
     Dosage: 300 MG, Q2W
     Route: 042

REACTIONS (1)
  - Infusion site extravasation [Not Recovered/Not Resolved]

NARRATIVE: CASE EVENT DATE: 20160617
